FAERS Safety Report 6676610-8 (Version None)
Quarter: 2010Q2

REPORT INFORMATION
  Report Type: 
  Country: None (occurrence: None)
  Receive Date: 20100412
  Receipt Date: 20100331
  Transmission Date: 20101027
  Serious: Yes (Hospitalization)
  Sender: FDA-Public Use
  Company Number: PHHY2010GB21739

PATIENT
  Sex: Male

DRUGS (2)
  1. CLOZARIL [Suspect]
     Indication: SCHIZOPHRENIA
     Dosage: 500 MG,DAILY
     Dates: start: 20091224
  2. CANNABIS [Suspect]

REACTIONS (3)
  - CONVULSION [None]
  - DRUG ABUSE [None]
  - VOMITING [None]
